FAERS Safety Report 22931901 (Version 2)
Quarter: 2024Q2

REPORT INFORMATION
  Report Type: Spontaneous
  Country: DE (occurrence: DE)
  Receive Date: 20230912
  Receipt Date: 20240627
  Transmission Date: 20240715
  Serious: Yes (Other)
  Sender: FDA-Public Use
  Company Number: DE-ABBVIE-5385497

PATIENT
  Age: 36 Year
  Sex: Male
  Weight: 105 kg

DRUGS (4)
  1. STELARA [Suspect]
     Active Substance: USTEKINUMAB
     Indication: Product used for unknown indication
     Dosage: THERAPY START DATE: 2016
     Route: 065
     Dates: end: 2019
  2. SKYRIZI [Suspect]
     Active Substance: RISANKIZUMAB-RZAA
     Indication: Crohn^s disease
     Route: 058
  3. ENTYVIO [Suspect]
     Active Substance: VEDOLIZUMAB
     Indication: Product used for unknown indication
     Dosage: THERAPY START DATE: 2015
     Route: 065
  4. HUMIRA [Suspect]
     Active Substance: ADALIMUMAB
     Indication: Crohn^s disease
     Route: 058

REACTIONS (8)
  - Ileocaecal resection [Unknown]
  - Gastrointestinal erosion [Unknown]
  - Drug ineffective [Unknown]
  - Off label use [Unknown]
  - Drug ineffective [Unknown]
  - Inflammation [Unknown]
  - Fatigue [Unknown]
  - Skin reaction [Unknown]

NARRATIVE: CASE EVENT DATE: 20140101
